FAERS Safety Report 7715242-7 (Version None)
Quarter: 2011Q3

REPORT INFORMATION
  Report Type: 
  Country: None (occurrence: None)
  Receive Date: 20110829
  Receipt Date: 20110825
  Transmission Date: 20111222
  Serious: Yes (Death, Other)
  Sender: FDA-Public Use
  Company Number: VE-PFIZER INC-2011191001

PATIENT
  Age: 65 Year
  Sex: Male

DRUGS (2)
  1. BI-EUGLUCON M [Concomitant]
     Indication: DIABETES MELLITUS
     Dosage: METFORMIN HYDROCHLORIDE 500 MG/GLIBENCLAMIDE 5 MG, 1X/DAY
     Route: 048
  2. LIPITOR [Suspect]
     Indication: CARDIOVASCULAR EVENT PROPHYLAXIS
     Dosage: 40 MG, 1X/DAY
     Route: 048
     Dates: start: 20100101

REACTIONS (2)
  - CARDIAC OPERATION [None]
  - CARDIAC ARREST [None]
